FAERS Safety Report 5968804-1 (Version None)
Quarter: 2008Q4

REPORT INFORMATION
  Report Type: 
  Country: None (occurrence: None)
  Receive Date: 20081121
  Receipt Date: 20081121
  Transmission Date: 20090506
  Serious: Yes (Death, Life-Threatening, Hospitalization)
  Sender: FDA-Public Use
  Company Number: None

PATIENT
  Age: 15 Year
  Sex: Female
  Weight: 102.0593 kg

DRUGS (2)
  1. ALESSE [Suspect]
  2. MOTRIN [Concomitant]

REACTIONS (16)
  - ANURIA [None]
  - ARTHRALGIA [None]
  - BLOOD CREATININE INCREASED [None]
  - BLOOD PRESSURE DIASTOLIC INCREASED [None]
  - FALL [None]
  - HEART RATE INCREASED [None]
  - HYPOTENSION [None]
  - NERVOUS SYSTEM DISORDER [None]
  - PAIN [None]
  - PULMONARY EMBOLISM [None]
  - PULSE ABSENT [None]
  - PUPIL FIXED [None]
  - SOFT TISSUE DISORDER [None]
  - SOFT TISSUE INFLAMMATION [None]
  - SYNCOPE [None]
  - UNRESPONSIVE TO STIMULI [None]
